FAERS Safety Report 17144882 (Version 1)
Quarter: 2019Q4

REPORT INFORMATION
  Report Type: Spontaneous
  Country: FR (occurrence: FR)
  Receive Date: 20191212
  Receipt Date: 20191212
  Transmission Date: 20200122
  Serious: Yes (Death)
  Sender: FDA-Public Use
  Company Number: FR-BAYER-2019-224720

PATIENT
  Sex: Male

DRUGS (1)
  1. LAROTRECTINIB [Suspect]
     Active Substance: LAROTRECTINIB
     Indication: NTRK GENE FUSION OVEREXPRESSION

REACTIONS (2)
  - NTRK gene fusion overexpression [Fatal]
  - Drug ineffective [None]
